FAERS Safety Report 8911066 (Version 2)
Quarter: 2013Q1

REPORT INFORMATION
  Report Type: Report from Study
  Country: GB (occurrence: GB)
  Receive Date: 20121116
  Receipt Date: 20130122
  Transmission Date: 20140127
  Serious: Yes (Death)
  Sender: FDA-Public Use
  Company Number: GB-AMGEN-GBRCT2012071950

PATIENT
  Age: 67 Year
  Sex: Female

DRUGS (1)
  1. ETANERCEPT [Suspect]
     Indication: RHEUMATOID ARTHRITIS
     Dosage: 25 MG, 2X/WEEK
     Dates: start: 20040921, end: 2011

REACTIONS (4)
  - Gastrointestinal haemorrhage [Fatal]
  - Rheumatoid arthritis [Fatal]
  - Urosepsis [Fatal]
  - Cardiac failure [Fatal]
